FAERS Safety Report 5079402-9 (Version None)
Quarter: 2006Q3

REPORT INFORMATION
  Report Type: 
  Country: None (occurrence: None)
  Receive Date: 20060814
  Receipt Date: 20060807
  Transmission Date: 20061208
  Serious: Yes (Hospitalization)
  Sender: FDA-Public Use
  Company Number: DE-JNJFOC-20050100986

PATIENT
  Age: 63 Year
  Sex: Female
  Weight: 58 kg

DRUGS (8)
  1. REMICADE [Suspect]
     Route: 042
  2. REMICADE [Suspect]
     Route: 042
  3. REMICADE [Suspect]
     Route: 042
  4. REMICADE [Suspect]
     Indication: RHEUMATOID ARTHRITIS
     Route: 042
  5. CYCLOSPORINE [Suspect]
     Route: 048
  6. CYCLOSPORINE [Suspect]
     Indication: RHEUMATOID ARTHRITIS
     Route: 048
  7. AZATHIOPRINE SODIUM [Suspect]
     Indication: DRUG USE FOR UNKNOWN INDICATION
     Dosage: UNKNOWN IF THERAPY COMMENCED IN OCT OR NOV.
     Route: 048
  8. PREDNISOLONE [Concomitant]
     Route: 048

REACTIONS (4)
  - CENTRAL NERVOUS SYSTEM INFLAMMATION [None]
  - DEMYELINATION [None]
  - HYPOAESTHESIA [None]
  - MICROANGIOPATHY [None]
